FAERS Safety Report 8830018 (Version 1)
Quarter: 2012Q4

REPORT INFORMATION
  Report Type: 
  Country: BR (occurrence: BR)
  Receive Date: 20121008
  Receipt Date: 20121008
  Transmission Date: 20130627
  Serious: Yes (Death, Hospitalization)
  Sender: FDA-Public Use
  Company Number: BR-ASTRAZENECA-2012SE18338

PATIENT
  Sex: Male

DRUGS (1)
  1. BRILINTA [Suspect]
     Indication: ACUTE MYOCARDIAL INFARCTION
     Route: 048
     Dates: start: 20120314, end: 20120315

REACTIONS (2)
  - Lung disorder [Fatal]
  - Dyspnoea [Recovered/Resolved]
